FAERS Safety Report 16818731 (Version 2)
Quarter: 2019Q3

REPORT INFORMATION
  Report Type: Spontaneous
  Country: PL (occurrence: PL)
  Receive Date: 20190917
  Receipt Date: 20190917
  Transmission Date: 20191005
  Serious: Yes (Other)
  Sender: FDA-Public Use
  Company Number: PHHY2019PL199581

PATIENT
  Age: 16 Year
  Sex: Female

DRUGS (3)
  1. CICLOSPORIN [Suspect]
     Active Substance: CYCLOSPORINE
     Indication: PSORIASIS
     Dosage: 3.5 MG/KG, QD
     Route: 065
  2. ACITRETIN. [Suspect]
     Active Substance: ACITRETIN
     Indication: PSORIASIS
     Dosage: 0.5 MG/KG, QD
     Route: 065
  3. METHOTREXATE. [Suspect]
     Active Substance: METHOTREXATE
     Indication: PSORIASIS
     Dosage: 20 MG, QW
     Route: 065

REACTIONS (3)
  - Psoriasis [Recovered/Resolved]
  - Thrombocytopenia [Recovering/Resolving]
  - Drug ineffective [Unknown]
